FAERS Safety Report 11352238 (Version 1)
Quarter: 2015Q3

REPORT INFORMATION
  Report Type: Spontaneous
  Country: US (occurrence: US)
  Receive Date: 20150807
  Receipt Date: 20150807
  Transmission Date: 20151125
  Serious: No
  Sender: FDA-Public Use
  Company Number: US-JNJFOC-20150312598

PATIENT
  Age: 54 Year
  Sex: Female
  Weight: 71.67 kg

DRUGS (8)
  1. BIOTIN MULTI-VITAMIN [Concomitant]
     Indication: NAIL DISORDER
     Dosage: CUT DOWN TO EVERY OTHER DAY
  2. BIOTIN MULTI-VITAMIN [Concomitant]
     Indication: HAIR DISORDER
     Dosage: CUT DOWN TO EVERY OTHER DAY
  3. WOMENS ROGAINE UNSCENTED [Suspect]
     Active Substance: MINOXIDIL
     Route: 061
  4. BIOTIN MULTI-VITAMIN [Concomitant]
     Indication: SKIN DISORDER
     Dosage: 1 YEAR
  5. BIOTIN MULTI-VITAMIN [Concomitant]
     Indication: NAIL DISORDER
     Dosage: 1 YEAR
  6. BIOTIN MULTI-VITAMIN [Concomitant]
     Indication: HAIR DISORDER
     Dosage: 1 YEAR
  7. BIOTIN MULTI-VITAMIN [Concomitant]
     Indication: SKIN DISORDER
     Dosage: CUT DOWN TO EVERY OTHER DAY
  8. WOMENS ROGAINE UNSCENTED [Suspect]
     Active Substance: MINOXIDIL
     Indication: ALOPECIA
     Dosage: LIBERALLY, 3 TINY DOTS
     Route: 061
     Dates: end: 20150311

REACTIONS (2)
  - Alopecia [Not Recovered/Not Resolved]
  - Incorrect dose administered [Unknown]
